FAERS Safety Report 5214751-2 (Version None)
Quarter: 2007Q1

REPORT INFORMATION
  Report Type: 
  Country: None (occurrence: None)
  Receive Date: 20070122
  Receipt Date: 20070115
  Transmission Date: 20070707
  Serious: Yes (Other)
  Sender: FDA-Public Use
  Company Number: DE-SHR-DE-2006-034881

PATIENT
  Age: 56 Year
  Sex: Female
  Weight: 60 kg

DRUGS (18)
  1. MAGNEVIST [Suspect]
     Dosage: 20 ML, 1 DOSE
     Dates: start: 20061024, end: 20061024
  2. NEXIUM [Concomitant]
     Dosage: 40 MG, 1X/DAY
  3. HERZASS ^RATIOPHARM^ [Concomitant]
     Dosage: 1X/DAY (ON DIALYIS-FREE DAYS)
  4. SODIUM BICARBONATE [Concomitant]
     Dosage: UNK, 2X/DAY
  5. ISOKET RETARD [Concomitant]
     Dosage: 20 MG, 2X/DAY
  6. CALCIUM ACETATE [Concomitant]
     Dosage: 5 TAB(S), UNK
  7. TOREM                                   /GFR/ [Concomitant]
     Dosage: UNK, 1X/DAY
  8. ENALAPRIL MALEATE [Concomitant]
     Dosage: 25 MG, 3X/DAY
  9. NITREPRESS [Concomitant]
     Dosage: 20 MG, 2X/DAY
  10. CYNT [Concomitant]
     Dosage: UNK, 1X/DAY
  11. CARVEDILOL [Concomitant]
     Dosage: 12.5 MG, 2X/DAY
  12. THYRONAJOD [Concomitant]
     Dosage: 1 TAB(S), 1X/DAY
  13. SIMVASTATIN [Concomitant]
     Dosage: 10 MG, 1X/DAY
  14. MIMPARA [Concomitant]
     Dosage: 90 MG, 1X/DAY
  15. BONDIOL [Concomitant]
     Dosage: 1 A?G, 1X/DAY
     Dates: end: 20060322
  16. FERRLECIT                               /GFR/ [Concomitant]
     Dosage: 40 MG/WEEK, ON MONDAYS
  17. DEKRISTOL [Concomitant]
     Dosage: 20000 IU, 2X/MONTH
  18. ARANESP [Concomitant]
     Dosage: 20 A?G, 1X/WEEK

REACTIONS (5)
  - ANOREXIA [None]
  - CHILLS [None]
  - LEUKOCYTOSIS [None]
  - PYREXIA [None]
  - VOMITING [None]
